FAERS Safety Report 16981958 (Version 1)
Quarter: 2019Q4

REPORT INFORMATION
  Report Type: Spontaneous
  Country: LT (occurrence: LT)
  Receive Date: 20191101
  Receipt Date: 20191101
  Transmission Date: 20200122
  Serious: Yes (Other)
  Sender: FDA-Public Use
  Company Number: LT-BRISTOL-MYERS SQUIBB COMPANY-BMS-2019-102820

PATIENT
  Age: 72 Year
  Sex: Female

DRUGS (9)
  1. XARELTO [Suspect]
     Active Substance: RIVAROXABAN
     Indication: COAGULOPATHY
     Dosage: 15 MILLIGRAM, ONE TABLET IN DAY
     Route: 048
     Dates: start: 201807, end: 20190516
  2. PRESTARIUM [PERINDOPRIL ARGININE] [Suspect]
     Active Substance: PERINDOPRIL ARGININE
     Indication: BLOOD PRESSURE INCREASED
     Dosage: UNK
     Route: 048
     Dates: start: 20190517, end: 20190531
  3. CARVEDILOL HEXAL [Suspect]
     Active Substance: CARVEDILOL
     Indication: PRODUCT USED FOR UNKNOWN INDICATION
     Dosage: 25 MILLIGRAM, BID
     Route: 048
     Dates: start: 201903, end: 20190516
  4. CORDARONE [Concomitant]
     Active Substance: AMIODARONE HYDROCHLORIDE
     Indication: HEART RATE
     Dosage: 200 MILLIGRAM, QD
     Route: 048
     Dates: start: 20190517
  5. BETALOC ZOK [Suspect]
     Active Substance: METOPROLOL SUCCINATE
     Indication: ARRHYTHMIA
     Dosage: 95 MILLIGRAM, QD, ONE TABLET IN DAY
     Route: 048
     Dates: end: 201807
  6. ELIQUIS [Suspect]
     Active Substance: APIXABAN
     Indication: COAGULOPATHY
     Dosage: 5 MILLIGRAM, BID
     Route: 048
     Dates: start: 20190517, end: 20190618
  7. ELIQUIS [Suspect]
     Active Substance: APIXABAN
     Indication: PRODUCT USED FOR UNKNOWN INDICATION
     Dosage: 2.5 MILLIGRAM, BID
     Route: 048
     Dates: start: 20190619
  8. CARVEDILOL HEXAL [Suspect]
     Active Substance: CARVEDILOL
     Indication: ARRHYTHMIA
     Dosage: 25 MILLIGRAM, 0.5 TABLETS TWICE DAILY
     Route: 048
     Dates: start: 201807
  9. PRESTERAM [Concomitant]
     Active Substance: AMLODIPINE BESYLATE\PERINDOPRIL ARGININE
     Indication: BLOOD PRESSURE INCREASED
     Dosage: 1 TAB, QD
     Route: 048
     Dates: start: 20190601

REACTIONS (13)
  - Urinary incontinence [Recovered/Resolved]
  - Asthenia [Recovered/Resolved]
  - Dry eye [Recovered/Resolved]
  - Abnormal faeces [Recovered/Resolved]
  - Dysgeusia [Recovered/Resolved]
  - Arrhythmia [Not Recovered/Not Resolved]
  - Decreased appetite [Recovered/Resolved]
  - Eye irritation [Recovered/Resolved]
  - Chest pain [Recovered/Resolved]
  - Eye disorder [Recovered/Resolved]
  - Dyspepsia [Recovered/Resolved]
  - Fatigue [Recovered/Resolved]
  - Drug ineffective [Not Recovered/Not Resolved]

NARRATIVE: CASE EVENT DATE: 201807
